FAERS Safety Report 24126681 (Version 1)
Quarter: 2024Q3

REPORT INFORMATION
  Report Type: Report from Study
  Country: US (occurrence: None)
  Receive Date: 20240723
  Receipt Date: 20240723
  Transmission Date: 20241016
  Serious: Yes (Other)
  Sender: ASTRAZENECA
  Company Number: 2024A162211

PATIENT
  Sex: Female

DRUGS (5)
  1. LYNPARZA [Suspect]
     Active Substance: OLAPARIB
     Indication: Breast cancer
     Route: 048
     Dates: start: 20240704
  2. CALCIUM [Concomitant]
     Active Substance: CALCIUM
  3. FISH OIL [Concomitant]
     Active Substance: FISH OIL
  4. XANAX [Concomitant]
     Active Substance: ALPRAZOLAM
  5. VICODEN [Concomitant]

REACTIONS (3)
  - Illness [Not Recovered/Not Resolved]
  - Tumour inflammation [Not Recovered/Not Resolved]
  - Tumour pain [Not Recovered/Not Resolved]
